FAERS Safety Report 23288446 (Version 3)
Quarter: 2023Q4

REPORT INFORMATION
  Report Type: Spontaneous
  Country: US (occurrence: US)
  Receive Date: 20231212
  Receipt Date: 20231227
  Transmission Date: 20240109
  Serious: Yes (Death, Hospitalization, Other)
  Sender: FDA-Public Use
  Company Number: US-002147023-NVSC2023US263174

PATIENT
  Age: 69 Year
  Sex: Female

DRUGS (1)
  1. LUTATHERA [Suspect]
     Active Substance: LUTETIUM OXODOTREOTIDE LU-177
     Indication: Product used for unknown indication
     Dosage: UNK
     Route: 065

REACTIONS (14)
  - Death [Fatal]
  - Ill-defined disorder [Unknown]
  - Deep vein thrombosis [Unknown]
  - Blood loss anaemia [Unknown]
  - Gastrointestinal haemorrhage [Unknown]
  - Thrombosis [Unknown]
  - Ascites [Unknown]
  - Hypoxia [Unknown]
  - Cardio-respiratory arrest [Unknown]
  - Suprapubic pain [Unknown]
  - Urinary tract infection [Unknown]
  - Haematuria [Unknown]
  - Pleural effusion [Unknown]
  - Generalised oedema [Unknown]

NARRATIVE: CASE EVENT DATE: 20231211
